FAERS Safety Report 19689094 (Version 1)
Quarter: 2021Q3

REPORT INFORMATION
  Report Type: Spontaneous
  Country: US (occurrence: US)
  Receive Date: 20210811
  Receipt Date: 20210811
  Transmission Date: 20211014
  Serious: No
  Sender: FDA-Public Use
  Company Number: US-SA-2021SA264520

PATIENT
  Age: 45 Year
  Sex: Male

DRUGS (4)
  1. DUPIXENT [Suspect]
     Active Substance: DUPILUMAB
     Indication: DERMATITIS ATOPIC
     Dosage: 300 MG, QOW
     Route: 058
     Dates: start: 20200812, end: 202107
  2. IBUPROFEN. [Concomitant]
     Active Substance: IBUPROFEN
  3. ONE?A?DAY MEN^S [Concomitant]
  4. TYLENOL [Concomitant]
     Active Substance: ACETAMINOPHEN

REACTIONS (2)
  - Injury [Unknown]
  - Surgery [Unknown]

NARRATIVE: CASE EVENT DATE: 202103
